FAERS Safety Report 8967171 (Version 1)
Quarter: 2012Q4

REPORT INFORMATION
  Report Type: 
  Country: CA (occurrence: CA)
  Receive Date: 20121217
  Receipt Date: 20121217
  Transmission Date: 20130627
  Serious: Yes (Death)
  Sender: FDA-Public Use
  Company Number: CA-BAXTER-2012BAX026546

PATIENT
  Sex: Male

DRUGS (3)
  1. DIANEAL PD4 SOLUTION WITH 1.5% DEXTROSE AND 2.5 MEQ/L CALCIUM [Suspect]
     Indication: PERITONEAL DIALYSIS
     Dosage: 3 PER DAY
     Route: 033
  2. EXTRANEAL [Suspect]
     Indication: PERITONEAL DIALYSIS
     Dosage: 1 PER DAY
     Route: 033
  3. NUTRINEAL PD4 1.1% AMINO ACIDS CLEAR-FLEX, SOLUTION FOR PERITONEAL DIA [Suspect]
     Indication: PERITONEAL DIALYSIS
     Dosage: 0.5 PER DAY
     Route: 033

REACTIONS (1)
  - Death [Fatal]
